FAERS Safety Report 6354159-X (Version None)
Quarter: 2009Q3

REPORT INFORMATION
  Report Type: 
  Country: None (occurrence: None)
  Receive Date: 20090909
  Receipt Date: 20090825
  Transmission Date: 20100115
  Serious: Yes (Death, Other)
  Sender: FDA-Public Use
  Company Number: GXKR2009US09559

PATIENT
  Age: 40 Year
  Sex: Male

DRUGS (4)
  1. CLOZAPINE [Suspect]
     Indication: SCHIZOPHRENIA
     Dosage: TITRATED TO 350 MG, BID OVER 4 MONTHS; 400 MG, BID
  2. TOPIRAMATE [Suspect]
     Indication: WEIGHT INCREASED
     Dosage: ADJUSTED TO 100 MG, BID
  3. ERYTHROMYCIN [Concomitant]
  4. AZITHROMYCIN [Concomitant]

REACTIONS (9)
  - CARDIOMEGALY [None]
  - CIRCULATORY COLLAPSE [None]
  - CONGESTIVE CARDIOMYOPATHY [None]
  - CONVULSION [None]
  - ELECTROENCEPHALOGRAM ABNORMAL [None]
  - PRODUCTIVE COUGH [None]
  - THERAPY RESPONDER [None]
  - WHITE BLOOD CELL COUNT INCREASED [None]
  - WITHDRAWAL SYNDROME [None]
